FAERS Safety Report 24608971 (Version 1)
Quarter: 2024Q4

REPORT INFORMATION
  Report Type: Spontaneous
  Country: CN (occurrence: CN)
  Receive Date: 20241112
  Receipt Date: 20241112
  Transmission Date: 20250115
  Serious: Yes (Other)
  Sender: MERCK
  Company Number: CN-009507513-2411CHN001992

PATIENT
  Age: 35 Year
  Sex: Male
  Weight: 65 kg

DRUGS (1)
  1. CILASTATIN SODIUM\IMIPENEM [Suspect]
     Active Substance: CILASTATIN SODIUM\IMIPENEM
     Indication: Pancreatitis acute
     Dosage: 1 GRAM, QID
     Route: 041
     Dates: start: 20241002, end: 20241016

REACTIONS (4)
  - Delirium [Recovered/Resolved]
  - Dysphoria [Recovered/Resolved]
  - Mental disorder [Recovered/Resolved]
  - Product use in unapproved indication [Unknown]

NARRATIVE: CASE EVENT DATE: 20241002
